FAERS Safety Report 8367671-9 (Version None)
Quarter: 2012Q2

REPORT INFORMATION
  Report Type: 
  Country: None (occurrence: None)
  Receive Date: 20120517
  Receipt Date: 20120510
  Transmission Date: 20120825
  Serious: Yes (Hospitalization)
  Sender: FDA-Public Use
  Company Number: US-GLAXOSMITHKLINE-A0879353A

PATIENT
  Age: 47 Year
  Sex: Female
  Weight: 76.4 kg

DRUGS (8)
  1. COMBIVENT [Concomitant]
  2. ASPIRIN [Concomitant]
  3. GLUCOPHAGE [Concomitant]
  4. NORVASC [Concomitant]
  5. COZAAR [Concomitant]
  6. LIPITOR [Concomitant]
  7. SYNTHROID [Concomitant]
  8. AVANDIA [Suspect]
     Indication: DIABETES MELLITUS
     Dosage: 8MG PER DAY
     Route: 048
     Dates: end: 20011130

REACTIONS (5)
  - CHRONIC OBSTRUCTIVE PULMONARY DISEASE [None]
  - CARDIAC FAILURE CONGESTIVE [None]
  - MYOCARDIAL INFARCTION [None]
  - ISCHAEMIC CARDIOMYOPATHY [None]
  - CORONARY ARTERY DISEASE [None]
